FAERS Safety Report 18231843 (Version 1)
Quarter: 2020Q3

REPORT INFORMATION
  Report Type: Spontaneous
  Country: FR (occurrence: FR)
  Receive Date: 20200904
  Receipt Date: 20200904
  Transmission Date: 20201103
  Serious: Yes (Other)
  Sender: FDA-Public Use
  Company Number: FR-TEVA-2020-FR-1822201

PATIENT
  Age: 33 Year
  Sex: Male

DRUGS (1)
  1. NAPROXENE [Suspect]
     Active Substance: NAPROXEN
     Indication: INJURY
     Dosage: 550 MG
     Route: 048
     Dates: start: 2018, end: 2018

REACTIONS (3)
  - Face oedema [Recovered/Resolved]
  - Conjunctivitis allergic [Recovered/Resolved]
  - Dyspnoea [Recovered/Resolved]

NARRATIVE: CASE EVENT DATE: 2018
